FAERS Safety Report 25688164 (Version 1)
Quarter: 2025Q3

REPORT INFORMATION
  Report Type: Spontaneous
  Country: EU (occurrence: EU)
  Receive Date: 20250818
  Receipt Date: 20250818
  Transmission Date: 20251020
  Serious: Yes (Other)
  Sender: PIRAMAL
  Company Number: EU-PIRAMAL PHARMA LIMITED-2025-PPL-000471

PATIENT

DRUGS (4)
  1. FENTANYL [Suspect]
     Active Substance: FENTANYL
     Indication: Perioperative analgesia
     Route: 042
     Dates: start: 20241021, end: 20241021
  2. SEVOFLURANE [Suspect]
     Active Substance: SEVOFLURANE
     Indication: Maintenance of anaesthesia
     Dates: start: 20241021, end: 20241021
  3. PROPOFOL [Suspect]
     Active Substance: PROPOFOL
     Indication: General anaesthesia
     Route: 042
     Dates: start: 20241021, end: 20241021
  4. FOSTER                             /00500401/ [Concomitant]
     Indication: Asthma

REACTIONS (1)
  - Angioedema [Recovered/Resolved]

NARRATIVE: CASE EVENT DATE: 20241021
